FAERS Safety Report 16874392 (Version 1)
Quarter: 2019Q4

REPORT INFORMATION
  Report Type: Spontaneous
  Country: US (occurrence: US)
  Receive Date: 20191001
  Receipt Date: 20191001
  Transmission Date: 20200122
  Serious: Yes (Hospitalization, Other)
  Sender: FDA-Public Use
  Company Number: US-OTSUKA-US-2011-10424

PATIENT
  Age: 51 Year
  Sex: Female

DRUGS (5)
  1. SAMSCA [Suspect]
     Active Substance: TOLVAPTAN
     Indication: HYPONATRAEMIA
     Dosage: 15 MG, UNK
     Route: 065
  2. SAMSCA [Suspect]
     Active Substance: TOLVAPTAN
     Dosage: 7.5 MG, UNK
     Route: 065
  3. SAMSCA [Suspect]
     Active Substance: TOLVAPTAN
     Dosage: 3 MG, QD
     Route: 065
  4. SAMSCA [Suspect]
     Active Substance: TOLVAPTAN
     Dosage: 1.5 MG, UNK
     Route: 065
  5. SAMSCA [Suspect]
     Active Substance: TOLVAPTAN
     Dosage: 4.5 MG, QD
     Route: 065

REACTIONS (7)
  - Wrong technique in product usage process [Unknown]
  - Confusional state [Recovered/Resolved]
  - Rapid correction of hyponatraemia [Recovered/Resolved]
  - Orthostatic hypotension [Recovered/Resolved]
  - Therapy change [Unknown]
  - Polyuria [Recovered/Resolved]
  - Urine output increased [Recovered/Resolved]
